FAERS Safety Report 9782530 (Version 2)
Quarter: 2014Q1

REPORT INFORMATION
  Report Type: Spontaneous
  Country: JP (occurrence: None)
  Receive Date: 20131220
  Receipt Date: 20140113
  Transmission Date: 20141002
  Serious: Yes (Life-Threatening, Hospitalization)
  Sender: FDA-Public Use
  Company Number: 2013P1021962

PATIENT
  Age: 22 Year
  Sex: Female
  Weight: 50 kg

DRUGS (11)
  1. VEGETAMIN A [Suspect]
     Dosage: 90 TABLETS
  2. SERTRALINE [Suspect]
  3. LITHIUM [Suspect]
  4. IOXOPROFEN [Suspect]
  5. TIZANIDINE [Suspect]
  6. FLUNITRAZEPAM [Suspect]
  7. TRIAZOLAM [Suspect]
  8. ALPRAZOLAM [Suspect]
  9. ETIZOLAM [Suspect]
  10. ZOPICLON [Suspect]
  11. ALCOHOL [Suspect]

REACTIONS (11)
  - Coma [None]
  - Respiratory depression [None]
  - Vomiting [None]
  - Gastrointestinal hypomotility [None]
  - Toxicity to various agents [None]
  - Overdose [None]
  - Dehydration [None]
  - Pneumonia [None]
  - Dysarthria [None]
  - Hallucinations, mixed [None]
  - Delusion [None]
